FAERS Safety Report 23063558 (Version 1)
Quarter: 2023Q4

REPORT INFORMATION
  Report Type: Spontaneous
  Country: SG (occurrence: SG)
  Receive Date: 20231013
  Receipt Date: 20231013
  Transmission Date: 20240110
  Serious: Yes (Other)
  Sender: FDA-Public Use
  Company Number: SG-SA-SAC20231010001225

PATIENT
  Age: 68 Year
  Sex: Male

DRUGS (1)
  1. GLIMEPIRIDE [Suspect]
     Active Substance: GLIMEPIRIDE
     Dosage: UNK

REACTIONS (1)
  - Back pain [Unknown]

NARRATIVE: CASE EVENT DATE: 20230815
